FAERS Safety Report 5046585-6 (Version None)
Quarter: 2006Q2

REPORT INFORMATION
  Report Type: 
  Country: None (occurrence: None)
  Receive Date: 20060601
  Receipt Date: 20060213
  Transmission Date: 20061013
  Serious: No
  Sender: FDA-Public Use
  Company Number: 2006PV008623

PATIENT
  Age: 54 Year
  Sex: Female

DRUGS (5)
  1. BYETTA [Suspect]
     Indication: DIABETES MELLITUS NON-INSULIN-DEPENDENT
     Dosage: 10 MCG SC ; 5 MCG BID SC
     Route: 058
     Dates: start: 20050801
  2. CRESTOR [Concomitant]
  3. ZESTRIL [Concomitant]
  4. COENZYME Q10 [Concomitant]
  5. SYMBOLTA [Concomitant]

REACTIONS (1)
  - INJECTION SITE URTICARIA [None]
